FAERS Safety Report 14290341 (Version 1)
Quarter: 2017Q4

REPORT INFORMATION
  Report Type: Spontaneous
  Country: NZ (occurrence: NZ)
  Receive Date: 20171215
  Receipt Date: 20171215
  Transmission Date: 20180321
  Serious: Yes (Death)
  Sender: FDA-Public Use
  Company Number: NZ-NOVOPROD-576637

PATIENT
  Age: 16 Year
  Sex: Male

DRUGS (2)
  1. INSULIN GLARGINE [Suspect]
     Active Substance: INSULIN GLARGINE
     Indication: TYPE 1 DIABETES MELLITUS
     Dosage: 30 U, QD (AT BED TIME)
     Route: 065
  2. INSULIN ASPART [Suspect]
     Active Substance: INSULIN ASPART
     Indication: TYPE 1 DIABETES MELLITUS
     Dosage: APPROX. 12 U THRICE DEPENDING ON MEALS
     Route: 065

REACTIONS (2)
  - Electrolyte imbalance [Fatal]
  - Ventricular arrhythmia [Fatal]
